FAERS Safety Report 13086355 (Version 1)
Quarter: 2017Q1

REPORT INFORMATION
  Report Type: Spontaneous
  Country: CA (occurrence: CA)
  Receive Date: 20170104
  Receipt Date: 20170104
  Transmission Date: 20170428
  Serious: Yes (Death)
  Sender: FDA-Public Use
  Company Number: CA-CELGENEUS-CAN-2016126994

PATIENT
  Age: 54 Year
  Sex: Male

DRUGS (16)
  1. REVLIMID [Suspect]
     Active Substance: LENALIDOMIDE
     Indication: PLASMA CELL MYELOMA
     Dosage: 25 MILLIGRAM
     Route: 048
     Dates: start: 20150422, end: 20150722
  2. DEXAMETHASONE. [Suspect]
     Active Substance: DEXAMETHASONE
     Indication: PLASMA CELL MYELOMA
     Dosage: 20 MILLIGRAM
     Route: 048
  3. ZOPICLONE [Concomitant]
     Active Substance: ZOPICLONE
     Indication: GASTROSTOMY
     Dosage: 7.5 MILLIGRAM
     Route: 048
  4. ARIPIPRAZOLE. [Concomitant]
     Active Substance: ARIPIPRAZOLE
     Indication: GASTROSTOMY
     Dosage: 20 MILLIGRAM
     Route: 048
  5. ONDANSETRON [Concomitant]
     Active Substance: ONDANSETRON
     Indication: GASTROSTOMY
     Dosage: 8 MILLIGRAM
     Route: 048
  6. VALACYCLOVIR [Concomitant]
     Active Substance: VALACYCLOVIR HYDROCHLORIDE
     Indication: GASTROSTOMY
     Dosage: 500 MILLIGRAM
     Route: 048
  7. ENDOCET [Concomitant]
     Active Substance: ACETAMINOPHEN\OXYCODONE HYDROCHLORIDE
     Indication: PRODUCT USED FOR UNKNOWN INDICATION
     Dosage: 5/325
     Route: 048
  8. ASA [Concomitant]
     Active Substance: ASPIRIN
     Indication: GASTROSTOMY
     Dosage: 80 MILLIGRAM
     Route: 048
  9. MIRTAZAPINE. [Concomitant]
     Active Substance: MIRTAZAPINE
     Indication: GASTROSTOMY
     Dosage: 30 MILLIGRAM
     Route: 048
  10. CHOLESTYRAMINE. [Concomitant]
     Active Substance: CHOLESTYRAMINE
     Indication: PRODUCT USED FOR UNKNOWN INDICATION
     Dosage: 4 MILLIGRAM
     Route: 048
  11. LITHIUM CARB [Concomitant]
     Active Substance: LITHIUM CARBONATE
     Indication: GASTROSTOMY
     Dosage: 600 MILLIGRAM
     Route: 048
  12. TAMSULOSIN [Concomitant]
     Active Substance: TAMSULOSIN
     Indication: GASTROSTOMY
     Dosage: .4 MILLIGRAM
     Route: 048
  13. MUPIROCIN. [Concomitant]
     Active Substance: MUPIROCIN
     Indication: GASTROSTOMY
     Dosage: 6 PERCENT
     Route: 061
  14. BORTEZOMIB [Concomitant]
     Active Substance: BORTEZOMIB
     Indication: GASTROSTOMY
     Dosage: 2.8 MILLIGRAM
     Route: 065
  15. QUETIAPINE. [Concomitant]
     Active Substance: QUETIAPINE
     Indication: GASTROSTOMY
     Dosage: 300 MILLIGRAM
     Route: 048
  16. LOTRIDERM [Concomitant]
     Active Substance: BETAMETHASONE DIPROPIONATE\CLOTRIMAZOLE
     Indication: GASTROSTOMY
     Route: 061

REACTIONS (3)
  - Plasma cell myeloma recurrent [Unknown]
  - Sudden death [Fatal]
  - Pain management [Unknown]

NARRATIVE: CASE EVENT DATE: 20150713
